FAERS Safety Report 9275458 (Version 3)
Quarter: 2013Q3

REPORT INFORMATION
  Report Type: Spontaneous
  Country: US (occurrence: US)
  Receive Date: 20130507
  Receipt Date: 20130725
  Transmission Date: 20140515
  Serious: Yes (Other)
  Sender: FDA-Public Use
  Company Number: US-PFIZER INC-2013138996

PATIENT
  Age: 29 Year
  Sex: Female
  Weight: 105 kg

DRUGS (3)
  1. SOLU CORTEF [Suspect]
     Dosage: UNK
  2. SOLU MEDROL [Suspect]
     Dosage: UNK
  3. ZOSYN [Suspect]
     Dosage: 4.5 G, SINGLE

REACTIONS (4)
  - Product quality issue [Unknown]
  - Occupational exposure to product [Unknown]
  - Laceration [Unknown]
  - Nervous system disorder [Unknown]
